FAERS Safety Report 23650918 (Version 2)
Quarter: 2024Q1

REPORT INFORMATION
  Report Type: Spontaneous
  Country: PL (occurrence: PL)
  Receive Date: 20240320
  Receipt Date: 20240322
  Transmission Date: 20240410
  Serious: Yes (Other)
  Sender: FDA-Public Use
  Company Number: PL-AMGEN-POLSP2024053100

PATIENT
  Age: 50 Year
  Sex: Male

DRUGS (4)
  1. VECTIBIX [Suspect]
     Active Substance: PANITUMUMAB
     Indication: Colorectal cancer metastatic
     Dosage: 6 MILLIGRAM/KILOGRAM (1 HOUR INFUSION DAY 1)
     Route: 042
     Dates: start: 20230731
  2. LEVOFOLIC [Concomitant]
     Indication: Colorectal cancer metastatic
     Dosage: 100 MILLIGRAM/SQ. METER, Q2H (2 HOUR INFUSION DAY 1-2)
     Route: 042
     Dates: start: 20230731
  3. FLUOROURACIL [Concomitant]
     Active Substance: FLUOROURACIL
     Indication: Colorectal cancer metastatic
     Dosage: 400 MILLIGRAM/SQ. METER, DAY 1-2
     Route: 042
     Dates: start: 20230731
  4. IRINOTECAN [Concomitant]
     Active Substance: IRINOTECAN
     Indication: Colorectal cancer metastatic
     Dosage: 180 MILLIGRAM/SQ. METER,  DAY 1
     Route: 042
     Dates: start: 20230731

REACTIONS (6)
  - Depilation [Unknown]
  - Skin lesion [Unknown]
  - Rash pustular [Unknown]
  - Palmar-plantar erythrodysaesthesia syndrome [Unknown]
  - Skin fissures [Unknown]
  - Skin toxicity [Unknown]
